FAERS Safety Report 5915263-0 (Version None)
Quarter: 2008Q4

REPORT INFORMATION
  Report Type: 
  Country: None (occurrence: None)
  Receive Date: 20081009
  Receipt Date: 20081009
  Transmission Date: 20090506
  Serious: No
  Sender: FDA-Public Use
  Company Number: None

PATIENT

DRUGS (2)
  1. CARVEDILOL [Suspect]
     Dosage: TABLET
  2. CARVEDILOL [Suspect]
     Dosage: TABLET

REACTIONS (7)
  - BLOOD PRESSURE DECREASED [None]
  - FATIGUE [None]
  - FEELING ABNORMAL [None]
  - INTENTIONAL DRUG MISUSE [None]
  - MEDICATION ERROR [None]
  - MOBILITY DECREASED [None]
  - PRODUCT QUALITY ISSUE [None]
